FAERS Safety Report 20939309 (Version 5)
Quarter: 2022Q3

REPORT INFORMATION
  Report Type: Report from Study
  Country: US (occurrence: US)
  Receive Date: 20220609
  Receipt Date: 20220929
  Transmission Date: 20221027
  Serious: Yes (Hospitalization, Other)
  Sender: FDA-Public Use
  Company Number: US-TAKEDA-2022TUS036624

PATIENT
  Sex: Male

DRUGS (3)
  1. MARIBAVIR [Suspect]
     Active Substance: MARIBAVIR
     Indication: Cytomegalovirus infection
     Dosage: 400 MILLIGRAM, Q12H
     Route: 048
     Dates: start: 20220529
  2. MARIBAVIR [Suspect]
     Active Substance: MARIBAVIR
     Dosage: 400 MILLIGRAM, BID
     Route: 048
     Dates: start: 20220529, end: 20220916
  3. TORSEMIDE [Concomitant]
     Active Substance: TORSEMIDE
     Dosage: 20 MILLIGRAM, BID
     Route: 065

REACTIONS (23)
  - Renal impairment [Unknown]
  - Cytomegalovirus test positive [Unknown]
  - Lethargy [Recovering/Resolving]
  - Sepsis [Unknown]
  - Complications of transplanted kidney [Unknown]
  - Pulmonary embolism [Unknown]
  - Hepatic failure [Unknown]
  - Large intestine perforation [Unknown]
  - Confusional state [Unknown]
  - Pneumonia [Unknown]
  - Hypervolaemia [Unknown]
  - Pleural effusion [Unknown]
  - Hospitalisation [Unknown]
  - Atrial fibrillation [Unknown]
  - Hepatic encephalopathy [Unknown]
  - Cough [Unknown]
  - Ammonia abnormal [Unknown]
  - Product odour abnormal [Unknown]
  - Diarrhoea [Unknown]
  - Weight decreased [Unknown]
  - Blood creatinine abnormal [Unknown]
  - Haemoglobin abnormal [Not Recovered/Not Resolved]
  - Therapy change [Unknown]
